FAERS Safety Report 8915344 (Version 1)
Quarter: 2012Q4

REPORT INFORMATION
  Report Type: 
  Country: ES (occurrence: ES)
  Receive Date: 20121116
  Receipt Date: 20121116
  Transmission Date: 20130627
  Serious: Yes (Hospitalization)
  Sender: FDA-Public Use
  Company Number: ES-GILEAD-2012-0064764

PATIENT
  Age: 83 Year
  Sex: Male

DRUGS (11)
  1. RANOLAZINE [Suspect]
     Indication: ANGINA PECTORIS
     Dosage: 500 mg, UNK
     Dates: start: 20120728, end: 20120920
  2. EPLERENONE [Concomitant]
     Dosage: UNK
     Dates: start: 20120728
  3. IVABRADINE [Concomitant]
     Dosage: UNK
     Dates: start: 20120728
  4. GLYCERYL TRINITRATE [Concomitant]
  5. RAMIPRIL [Concomitant]
  6. ACENOCOUMAROL [Concomitant]
  7. PANTOPRAZOLE [Concomitant]
  8. CLORAZEPATE [Concomitant]
  9. CARVEDILOL [Concomitant]
  10. TORASEMIDE [Concomitant]
  11. ESCITALOPRAM [Suspect]

REACTIONS (4)
  - Hyponatraemia [Recovered/Resolved]
  - Hyperkalaemia [Recovered/Resolved]
  - Nausea [Unknown]
  - Vomiting [Unknown]
